FAERS Safety Report 10430109 (Version 1)
Quarter: 2014Q3

REPORT INFORMATION
  Report Type: Spontaneous
  Country: US (occurrence: None)
  Receive Date: 20140902
  Receipt Date: 20140902
  Transmission Date: 20150326
  Serious: Yes (Other)
  Sender: FDA-Public Use
  Company Number: None

PATIENT
  Age: 59 Year
  Sex: Female

DRUGS (1)
  1. TASIGNA [Suspect]
     Active Substance: NILOTINIB
     Indication: CHRONIC MYELOID LEUKAEMIA
     Dosage: 300MG BID PO?1 DOSE
     Route: 048

REACTIONS (3)
  - Feeling abnormal [None]
  - Dysphagia [None]
  - Paraesthesia [None]

NARRATIVE: CASE EVENT DATE: 20140829
